FAERS Safety Report 22930500 (Version 2)
Quarter: 2023Q4

REPORT INFORMATION
  Report Type: Report from Study
  Country: KR (occurrence: KR)
  Receive Date: 20230911
  Receipt Date: 20231005
  Transmission Date: 20240110
  Serious: Yes (Death, Hospitalization)
  Sender: FDA-Public Use
  Company Number: KR-GILEAD-2023-0642055

PATIENT
  Sex: Male
  Weight: 58.2 kg

DRUGS (7)
  1. SACITUZUMAB GOVITECAN-HZIY [Suspect]
     Active Substance: SACITUZUMAB GOVITECAN-HZIY
     Indication: Lung neoplasm malignant
     Dosage: 528 MG
     Route: 042
     Dates: start: 20230808, end: 20230808
  2. SACITUZUMAB GOVITECAN-HZIY [Suspect]
     Active Substance: SACITUZUMAB GOVITECAN-HZIY
     Dosage: 528 MG C1D8
     Route: 042
     Dates: start: 20230818, end: 20230818
  3. METFORMIN HYDROCHLORIDE\VILDAGLIPTIN [Concomitant]
     Active Substance: METFORMIN HYDROCHLORIDE\VILDAGLIPTIN
     Indication: Diabetes mellitus
     Route: 048
     Dates: start: 2014
  4. GANAKHAN [Concomitant]
     Indication: Prophylaxis
     Route: 048
     Dates: start: 20230808
  5. LOPAINE [Concomitant]
     Indication: Prophylaxis
     Route: 048
     Dates: start: 20230808
  6. MAGMIL S [Concomitant]
     Indication: Prophylaxis
     Route: 048
     Dates: start: 20230808
  7. TOPISOL MILK LOTION [Concomitant]
     Indication: Prophylaxis
     Route: 061
     Dates: start: 20230808

REACTIONS (1)
  - Pneumonia [Fatal]

NARRATIVE: CASE EVENT DATE: 20230828
